FAERS Safety Report 4371692-0 (Version None)
Quarter: 2004Q2

REPORT INFORMATION
  Report Type: 
  Country: None (occurrence: None)
  Receive Date: 20040526
  Receipt Date: 20040513
  Transmission Date: 20050107
  Serious: Yes (Other)
  Sender: FDA-Public Use
  Company Number: 200403801

PATIENT
  Age: 19 Month
  Sex: Female
  Weight: 10.2059 kg

DRUGS (2)
  1. CONCENTRATED MOTRIN INFANTS' DROPS [Suspect]
     Indication: PYREXIA
  2. CONCENTRATED MOTRIN INFANTS' DROPS [Suspect]
     Indication: TEETHING

REACTIONS (4)
  - LETHARGY [None]
  - MALAISE [None]
  - SCREAMING [None]
  - VOMITING [None]
